FAERS Safety Report 11860351 (Version 1)
Quarter: 2015Q4

REPORT INFORMATION
  Report Type: Spontaneous
  Country: FR (occurrence: FR)
  Receive Date: 20151222
  Receipt Date: 20151222
  Transmission Date: 20160305
  Serious: Yes (Hospitalization, Other)
  Sender: FDA-Public Use
  Company Number: FR-PFIZER INC-2015454546

PATIENT
  Age: 55 Year
  Sex: Male

DRUGS (3)
  1. IMUREL /00001501/ [Suspect]
     Active Substance: AZATHIOPRINE SODIUM
     Indication: CROHN^S DISEASE
     Dosage: UNK
     Dates: start: 2011, end: 20151123
  2. DEPAKOTE [Suspect]
     Active Substance: DIVALPROEX SODIUM
     Indication: BIPOLAR DISORDER
     Dosage: UNK
     Route: 048
     Dates: start: 2010, end: 20151123
  3. ZOLOFT [Suspect]
     Active Substance: SERTRALINE HYDROCHLORIDE
     Indication: BIPOLAR DISORDER
     Dosage: UNK
     Dates: start: 201409, end: 20151123

REACTIONS (7)
  - Acute kidney injury [Unknown]
  - Sepsis [Unknown]
  - Nephrogenic diabetes insipidus [Unknown]
  - Pleural effusion [Unknown]
  - Pancreatitis acute [Not Recovered/Not Resolved]
  - Acute respiratory distress syndrome [Unknown]
  - Hypernatraemia [Unknown]

NARRATIVE: CASE EVENT DATE: 2015
